FAERS Safety Report 19181736 (Version 2)
Quarter: 2021Q2

REPORT INFORMATION
  Report Type: Spontaneous
  Country: PL (occurrence: PL)
  Receive Date: 20210426
  Receipt Date: 20210604
  Transmission Date: 20210717
  Serious: Yes (Hospitalization, Other)
  Sender: FDA-Public Use
  Company Number: PL-NOVOPROD-804770

PATIENT
  Age: 22 Year
  Sex: Female

DRUGS (6)
  1. LANTUS [Concomitant]
     Active Substance: INSULIN GLARGINE
     Indication: TYPE 1 DIABETES MELLITUS
     Dosage: 16 IU, QD
     Route: 058
  2. FIASP [Suspect]
     Active Substance: INSULIN ASPART
     Dosage: 2.1  UNIT/CARBOHYDRATE EXCHANGER(INCREASING DOSES)
     Route: 058
     Dates: start: 202103
  3. ACTRAPID [Suspect]
     Active Substance: INSULIN HUMAN
     Indication: TYPE 1 DIABETES MELLITUS
     Dosage: 12 IU, TID
     Route: 058
  4. FIASP [Suspect]
     Active Substance: INSULIN ASPART
     Dosage: DOSE INCREASED TO1.7  UNIT/CARBOHYDRATE EXCHANGER(INCREASING DOSES)
     Route: 058
     Dates: start: 202101
  5. FIASP [Suspect]
     Active Substance: INSULIN ASPART
     Indication: TYPE 1 DIABETES MELLITUS
     Dosage: 1.2  UNIT/CARBOHYDRATE EXCHANGER
     Route: 058
  6. LANTUS [Concomitant]
     Active Substance: INSULIN GLARGINE
     Dosage: 21 IU, QD (INCREASING DAILY DOSE)
     Route: 058

REACTIONS (6)
  - Maternal exposure during pregnancy [Recovered/Resolved]
  - Hypoglycaemia [Unknown]
  - Hyperglycaemia [Unknown]
  - Premature delivery [Recovered/Resolved]
  - Diabetic metabolic decompensation [Recovered/Resolved]
  - Proteinuria [Unknown]

NARRATIVE: CASE EVENT DATE: 202010
